FAERS Safety Report 8328939-5 (Version None)
Quarter: 2012Q2

REPORT INFORMATION
  Report Type: 
  Country: None (occurrence: None)
  Receive Date: 20120502
  Receipt Date: 20101001
  Transmission Date: 20120825
  Serious: No
  Sender: FDA-Public Use
  Company Number: US-TEVA-2010005232

PATIENT
  Sex: Male
  Weight: 86.26 kg

DRUGS (4)
  1. NUVIGIL [Suspect]
     Route: 048
     Dates: start: 20100801, end: 20100828
  2. RITALIN [Concomitant]
  3. NUVIGIL [Suspect]
     Indication: SOMNOLENCE
     Route: 048
     Dates: start: 20100801, end: 20100801
  4. NUVIGIL [Suspect]
     Dosage: 400 MILLIGRAM;
     Route: 048
     Dates: start: 20100929

REACTIONS (2)
  - DRUG PRESCRIBING ERROR [None]
  - DRUG INEFFECTIVE FOR UNAPPROVED INDICATION [None]
